FAERS Safety Report 21786139 (Version 1)
Quarter: 2022Q4

REPORT INFORMATION
  Report Type: Report from Study
  Country: JP (occurrence: JP)
  Receive Date: 20221228
  Receipt Date: 20221228
  Transmission Date: 20230112
  Serious: No
  Sender: FDA-Public Use
  Company Number: JP-UCBSA-2022040897

PATIENT
  Age: 20 Year
  Sex: Female
  Weight: 45 kg

DRUGS (12)
  1. FENFLURAMINE HYDROCHLORIDE [Suspect]
     Active Substance: FENFLURAMINE HYDROCHLORIDE
     Indication: Severe myoclonic epilepsy of infancy
     Dosage: 0.2 MILLIGRAM/KILOGRAM, ONCE DAILY (QD)
     Route: 048
     Dates: start: 20200122, end: 20200219
  2. FENFLURAMINE HYDROCHLORIDE [Suspect]
     Active Substance: FENFLURAMINE HYDROCHLORIDE
     Dosage: 0.4 MILLIGRAM/KILOGRAM, ONCE DAILY (QD)
     Route: 048
     Dates: start: 20200219, end: 20200316
  3. FENFLURAMINE HYDROCHLORIDE [Suspect]
     Active Substance: FENFLURAMINE HYDROCHLORIDE
     Dosage: 0.6 MILLIGRAM/KILOGRAM, ONCE DAILY (QD)
     Route: 048
     Dates: start: 20200316
  4. MAGNESIUM OXIDE [Concomitant]
     Active Substance: MAGNESIUM OXIDE
     Dosage: 750 MILLIGRAM, BID
     Route: 048
     Dates: start: 20190430
  5. CARBOCYSTEINE [Concomitant]
     Active Substance: CARBOCYSTEINE
     Dosage: 750 MILLIGRAM, PRN
     Route: 048
     Dates: start: 20130206
  6. VALPROIC ACID [Concomitant]
     Active Substance: VALPROIC ACID
     Dosage: 400 MILLIGRAM, QPM
     Route: 048
     Dates: start: 20200527
  7. VALPROIC ACID [Concomitant]
     Active Substance: VALPROIC ACID
     Dosage: 250 MILLIGRAM, QAM
     Route: 048
     Dates: start: 20201021
  8. TOPIRAMATE [Concomitant]
     Active Substance: TOPIRAMATE
     Dosage: 70 MILLIGRAM, QPM
     Route: 048
     Dates: start: 20190430
  9. TOPIRAMATE [Concomitant]
     Active Substance: TOPIRAMATE
     Dosage: 25 MILLIGRAM, QAM
     Route: 048
     Dates: start: 20190430, end: 20210421
  10. TOPIRAMATE [Concomitant]
     Active Substance: TOPIRAMATE
     Dosage: 20 MILLIGRAM, QAM
     Route: 048
     Dates: start: 20210422
  11. CLOBAZAM [Concomitant]
     Active Substance: CLOBAZAM
     Dosage: 4 MILLIGRAM, QAM
     Route: 048
     Dates: start: 20140108
  12. CLOBAZAM [Concomitant]
     Active Substance: CLOBAZAM
     Dosage: 2 MILLIGRAM, QPM
     Route: 048
     Dates: start: 20140108

REACTIONS (1)
  - Blood glucose decreased [Not Recovered/Not Resolved]

NARRATIVE: CASE EVENT DATE: 20210721
